FAERS Safety Report 20412689 (Version 1)
Quarter: 2022Q1

REPORT INFORMATION
  Report Type: Spontaneous
  Country: US (occurrence: US)
  Receive Date: 20220201
  Receipt Date: 20220201
  Transmission Date: 20220423
  Serious: No
  Sender: FDA-Public Use
  Company Number: US-INCYTE CORPORATION-2022IN000794

PATIENT

DRUGS (1)
  1. JAKAFI [Suspect]
     Active Substance: RUXOLITINIB
     Dosage: 20 MILLIGRAM 1/2 TWICE A DAY
     Route: 048
     Dates: start: 20190913

REACTIONS (4)
  - Skin irritation [Unknown]
  - Pruritus [Unknown]
  - Product availability issue [Unknown]
  - Wrong technique in product usage process [Unknown]
